FAERS Safety Report 18440478 (Version 1)
Quarter: 2020Q4

REPORT INFORMATION
  Report Type: Spontaneous
  Country: US (occurrence: US)
  Receive Date: 20201029
  Receipt Date: 20201029
  Transmission Date: 20210114
  Serious: Yes (Other)
  Sender: FDA-Public Use
  Company Number: US-PFIZER INC-2020419085

PATIENT
  Age: 46 Year
  Sex: Male

DRUGS (1)
  1. HEPARIN SODIUM. [Suspect]
     Active Substance: HEPARIN SODIUM
     Indication: PULMONARY EMBOLISM
     Dosage: UNK
     Route: 042

REACTIONS (4)
  - Acidosis [Recovered/Resolved]
  - Hypercapnia [Recovered/Resolved]
  - Condition aggravated [Recovered/Resolved]
  - Obstructive shock [Recovered/Resolved]
